FAERS Safety Report 6112298-2 (Version None)
Quarter: 2009Q1

REPORT INFORMATION
  Report Type: 
  Country: None (occurrence: None)
  Receive Date: 20090312
  Receipt Date: 20090303
  Transmission Date: 20090719
  Serious: Yes (Hospitalization, Other)
  Sender: FDA-Public Use
  Company Number: GB-RANBAXY-2009RR-22310

PATIENT

DRUGS (1)
  1. PARACETAMOL [Suspect]

REACTIONS (2)
  - OVERDOSE [None]
  - RENAL FAILURE ACUTE [None]
